FAERS Safety Report 10712068 (Version 1)
Quarter: 2015Q1

REPORT INFORMATION
  Report Type: Spontaneous
  Country: GB (occurrence: GB)
  Receive Date: 20150114
  Receipt Date: 20150114
  Transmission Date: 20150721
  Serious: Yes (Other)
  Sender: FDA-Public Use
  Company Number: GB-ABBVIE-15P-167-1332675-00

PATIENT
  Age: 44 Year
  Sex: Female
  Weight: 86.17 kg

DRUGS (1)
  1. LUPRON DEPOT [Suspect]
     Active Substance: LEUPROLIDE ACETATE
     Indication: PREMENSTRUAL DYSPHORIC DISORDER
     Dosage: 1 MONTH INJECTION - THEN 1 -3 MONTH INJECTION
     Route: 051
     Dates: start: 20141103, end: 20141201

REACTIONS (7)
  - Swollen tongue [Not Recovered/Not Resolved]
  - Lip swelling [Unknown]
  - Back pain [Not Recovered/Not Resolved]
  - Headache [Not Recovered/Not Resolved]
  - Eye swelling [Not Recovered/Not Resolved]
  - Injection site swelling [Not Recovered/Not Resolved]
  - Injection site infection [Not Recovered/Not Resolved]

NARRATIVE: CASE EVENT DATE: 20141201
